FAERS Safety Report 8940901 (Version 1)
Quarter: 2012Q4

REPORT INFORMATION
  Report Type: Report from Study
  Country: DE (occurrence: DE)
  Receive Date: 20121203
  Receipt Date: 20121203
  Transmission Date: 20130627
  Serious: Yes (Hospitalization)
  Sender: FDA-Public Use
  Company Number: DE-ABBOTT-12P-062-0944701-00

PATIENT
  Sex: Female

DRUGS (1)
  1. HUMIRA 40 MG/0.8 ML PEN [Suspect]
     Indication: CROHN^S DISEASE
     Route: 058
     Dates: start: 20110902, end: 20120515

REACTIONS (4)
  - Intestinal stenosis [Recovered/Resolved]
  - Intestinal stenosis [Recovered/Resolved]
  - Intestinal stenosis [Recovered/Resolved]
  - Intestinal stenosis [Recovered/Resolved]
